FAERS Safety Report 5972549-1 (Version None)
Quarter: 2008Q4

REPORT INFORMATION
  Report Type: 
  Country: None (occurrence: None)
  Receive Date: 20081201
  Receipt Date: 20081124
  Transmission Date: 20090506
  Serious: Yes (Other)
  Sender: FDA-Public Use
  Company Number: B0547490A

PATIENT
  Age: 72 Year
  Sex: Female

DRUGS (1)
  1. CLENIL [Suspect]
     Indication: ASTHMA
     Route: 048
     Dates: start: 20081031, end: 20081107

REACTIONS (4)
  - CHEST DISCOMFORT [None]
  - COUGH [None]
  - DYSPNOEA [None]
  - RHINITIS [None]
